FAERS Safety Report 14770146 (Version 1)
Quarter: 2018Q2

REPORT INFORMATION
  Report Type: Report from Study
  Country: DE (occurrence: DE)
  Receive Date: 20180417
  Receipt Date: 20180417
  Transmission Date: 20180711
  Serious: Yes (Other)
  Sender: FDA-Public Use
  Company Number: DE-PFIZER INC-2018151124

PATIENT

DRUGS (2)
  1. IDARUBICIN HCL [Suspect]
     Active Substance: IDARUBICIN HYDROCHLORIDE
     Indication: PLASMA CELL MYELOMA
     Dosage: 7.5 MG/M2, CYCLIC (DAY 1, 30 MIN INFUSION IN 100 ML ISOTONIC SALINE)
     Route: 042
  2. DEXAMETHASONE. [Suspect]
     Active Substance: DEXAMETHASONE
     Indication: PLASMA CELL MYELOMA
     Dosage: 20 MG, CYCLIC (ON DAYS 2-5 AND 11-14)
     Route: 048

REACTIONS (1)
  - Pneumonia [Unknown]
